FAERS Safety Report 8426614-X (Version None)
Quarter: 2012Q2

REPORT INFORMATION
  Report Type: 
  Country: None (occurrence: None)
  Receive Date: 20120604
  Receipt Date: 20120524
  Transmission Date: 20120825
  Serious: Yes (Life-Threatening, Hospitalization)
  Sender: FDA-Public Use
  Company Number: 2012SP028248

PATIENT
  Age: 45 Year
  Sex: Male
  Weight: 66 kg

DRUGS (3)
  1. VICTRELIS [Suspect]
     Indication: HEPATITIS C
  2. TRUVADA [Concomitant]
  3. KALETRA [Concomitant]

REACTIONS (3)
  - RECTAL CANCER STAGE IV [None]
  - WOUND COMPLICATION [None]
  - METASTASES TO LIVER [None]
